FAERS Safety Report 8088495-6 (Version None)
Quarter: 2012Q1

REPORT INFORMATION
  Report Type: 
  Country: None (occurrence: None)
  Receive Date: 20120128
  Receipt Date: 20110418
  Transmission Date: 20120608
  Serious: No
  Sender: FDA-Public Use
  Company Number: US-ABBOTT-11P-163-0719918-00

PATIENT
  Age: 66 Year
  Sex: Female

DRUGS (16)
  1. BACTRIM DS [Concomitant]
     Indication: URINARY TRACT DISORDER
  2. INHALERS [Concomitant]
     Indication: ASTHMA
  3. WELLBUTRIN [Concomitant]
     Indication: ATTENTION DEFICIT/HYPERACTIVITY DISORDER
  4. DICLOFENAC [Concomitant]
     Indication: ARTHRITIS
  5. KEFLEX [Concomitant]
     Indication: URINARY TRACT DISORDER
     Dosage: 100MG DAILY
  6. MIRAPEX [Concomitant]
     Indication: RESTLESS LEGS SYNDROME
     Dosage: 0.25MG AT BEDTIME
  7. TRAZODONE HCL [Concomitant]
     Indication: INSOMNIA
     Dosage: 50MG AT NIGHT
  8. HUMIRA [Suspect]
     Indication: RHEUMATOID ARTHRITIS
     Dates: start: 20110325
  9. ESTRING [Concomitant]
     Indication: HORMONE REPLACEMENT THERAPY
     Dosage: VAGINAL RING EVERY THREE MONTHS
  10. NEURONTIN [Concomitant]
     Indication: NEURALGIA
  11. LASIX [Concomitant]
     Indication: FLUID RETENTION
     Dosage: 20MG DAILY
  12. ADENOSINE [Concomitant]
     Indication: GASTRIC DISORDER
  13. VESICARE [Concomitant]
     Indication: URINARY TRACT DISORDER
     Dosage: 10MG DAILY
  14. CYMBALTA [Concomitant]
     Indication: DEPRESSION
     Dosage: 60MG DAILY
  15. DEPAKOTE [Concomitant]
     Indication: BIPOLAR DISORDER
  16. VICODIN [Concomitant]
     Indication: PAIN
     Dosage: 5/500 MG 1/2 TAB BID

REACTIONS (2)
  - DRUG ADMINISTRATION ERROR [None]
  - MUSCLE SPASMS [None]
